FAERS Safety Report 15999893 (Version 3)
Quarter: 2019Q2

REPORT INFORMATION
  Report Type: Spontaneous
  Country: JP (occurrence: JP)
  Receive Date: 20190225
  Receipt Date: 20190524
  Transmission Date: 20190711
  Serious: Yes (Hospitalization)
  Sender: FDA-Public Use
  Company Number: JP-ASTRAZENECA-2019SE31451

PATIENT
  Age: 75 Year
  Sex: Male

DRUGS (8)
  1. NIFEDIPINE CR SANWA [Concomitant]
     Route: 065
  2. ONGLYZA [Suspect]
     Active Substance: SAXAGLIPTIN HYDROCHLORIDE
     Indication: TYPE 2 DIABETES MELLITUS
     Route: 048
  3. BAYASPIRIN [Concomitant]
     Active Substance: ASPIRIN
     Route: 065
  4. FERROUS CITRATE [Concomitant]
     Active Substance: FERROUS CITRATE
     Route: 065
  5. CANDESARTAN. [Concomitant]
     Active Substance: CANDESARTAN
     Route: 065
  6. THYRADIN S [Concomitant]
     Active Substance: LEVOTHYROXINE SODIUM
     Route: 048
  7. URIEF [Concomitant]
     Active Substance: SILODOSIN
  8. MITIGLINIDE [Concomitant]
     Active Substance: MITIGLINIDE
     Route: 065

REACTIONS (2)
  - Blood creatinine increased [Recovering/Resolving]
  - Hospitalisation [Unknown]

NARRATIVE: CASE EVENT DATE: 20190218
